FAERS Safety Report 6202879-X (Version None)
Quarter: 2009Q2

REPORT INFORMATION
  Report Type: 
  Country: None (occurrence: None)
  Receive Date: 20090520
  Receipt Date: 20090507
  Transmission Date: 20091009
  Serious: Yes (Life-Threatening)
  Sender: FDA-Public Use
  Company Number: GXKR2009GR05522

PATIENT
  Age: 67 Year
  Sex: Female

DRUGS (2)
  1. AMIODARONE HCL [Suspect]
     Dosage: TRANSPLACENTAL
     Route: 064
  2. ZOLPIDEM [Suspect]

REACTIONS (4)
  - CARDIAC ARREST [None]
  - DRUG INTERACTION [None]
  - ELECTROCARDIOGRAM QT PROLONGED [None]
  - TORSADE DE POINTES [None]
